FAERS Safety Report 9276573 (Version 1)
Quarter: 2012Q4

REPORT INFORMATION
  Report Type: Spontaneous
  Country: JP (occurrence: None)
  Receive Date: 20121109
  Receipt Date: 20121109
  Transmission Date: 20130627
  Serious: Yes (Death)
  Sender: FDA-Public Use
  Company Number: 2012S1000299

PATIENT
  Age: 82 Year
  Sex: Male

DRUGS (8)
  1. CUBICIN [Suspect]
     Indication: STAPHYLOCOCCAL SEPSIS
     Dates: start: 20120306, end: 20120311
  2. VANCOMYCIN [Concomitant]
  3. TEICOPLANIN [Concomitant]
  4. CLINDAMYCIN [Concomitant]
  5. CILASTATIN\IMIPENEM [Concomitant]
  6. ALL OTHER THERAPEUTIC PODUCTS [Concomitant]
  7. HANP [Concomitant]
  8. CEFOTAXIME [Concomitant]

REACTIONS (1)
  - Staphylococcal sepsis [None]
